FAERS Safety Report 4743309-4 (Version None)
Quarter: 2005Q3

REPORT INFORMATION
  Report Type: 
  Country: None (occurrence: None)
  Receive Date: 20050811
  Receipt Date: 20050727
  Transmission Date: 20060218
  Serious: Yes (Other)
  Sender: FDA-Public Use
  Company Number: 2005108538

PATIENT
  Sex: Male
  Weight: 104.3273 kg

DRUGS (2)
  1. VIAGRA [Suspect]
     Indication: ERECTILE DYSFUNCTION
     Dosage: 25 MG, PRN
     Dates: start: 20030101, end: 20050701
  2. ACYCLOVIR [Concomitant]

REACTIONS (4)
  - HIP ARTHROPLASTY [None]
  - PEYRONIE'S DISEASE [None]
  - POST PROCEDURAL COMPLICATION [None]
  - VASCULAR INSUFFICIENCY [None]
